FAERS Safety Report 16699392 (Version 2)
Quarter: 2019Q3

REPORT INFORMATION
  Report Type: Report from Study
  Country: CA (occurrence: CA)
  Receive Date: 20190813
  Receipt Date: 20190905
  Transmission Date: 20191004
  Serious: Yes (Hospitalization)
  Sender: FDA-Public Use
  Company Number: CA-JNJFOC-20190813190

PATIENT
  Age: 15 Year
  Sex: Female
  Weight: 44 kg

DRUGS (1)
  1. REMICADE [Suspect]
     Active Substance: INFLIXIMAB
     Indication: COLITIS ULCERATIVE
     Route: 042
     Dates: start: 20190723

REACTIONS (4)
  - Off label use [Unknown]
  - Meningitis [Recovered/Resolved]
  - Listeriosis [Unknown]
  - Product use issue [Unknown]

NARRATIVE: CASE EVENT DATE: 20190726
